FAERS Safety Report 6427035-1 (Version None)
Quarter: 2009Q4

REPORT INFORMATION
  Report Type: 
  Country: None (occurrence: None)
  Receive Date: 20091103
  Receipt Date: 20091103
  Transmission Date: 20100525
  Serious: Yes (Hospitalization)
  Sender: FDA-Public Use
  Company Number: None

PATIENT
  Age: 67 Year
  Sex: Male
  Weight: 63.64 kg

DRUGS (1)
  1. METHADONE HCL [Suspect]
     Dates: start: 20080926, end: 20090603

REACTIONS (1)
  - BRADYCARDIA [None]
